FAERS Safety Report 7823258-5 (Version None)
Quarter: 2011Q4

REPORT INFORMATION
  Report Type: 
  Country: None (occurrence: None)
  Receive Date: 20111013
  Receipt Date: 20110927
  Transmission Date: 20120403
  Serious: Yes (Hospitalization, Disabling, Other)
  Sender: FDA-Public Use
  Company Number: 2011MA014521

PATIENT
  Age: 20 Year
  Sex: Male
  Weight: 57 kg

DRUGS (2)
  1. METHYLCOBALAMIN (NO PREF. NAME) [Suspect]
     Indication: PRODUCT USED FOR UNKNOWN INDICATION
     Dosage: 1.5 MG
  2. PHENYTOIN [Suspect]
     Indication: CONVULSION
     Dosage: 250 MG

REACTIONS (16)
  - VISUAL IMPAIRMENT [None]
  - TOXICITY TO VARIOUS AGENTS [None]
  - NYSTAGMUS [None]
  - AREFLEXIA [None]
  - ANTICONVULSANT DRUG LEVEL BELOW THERAPEUTIC [None]
  - MEMORY IMPAIRMENT [None]
  - SPEECH DISORDER [None]
  - CONVULSION [None]
  - INCORRECT DOSE ADMINISTERED [None]
  - DYSSTASIA [None]
  - LEUKOENCEPHALOPATHY [None]
  - DYSARTHRIA [None]
  - GUILLAIN-BARRE SYNDROME [None]
  - PARAPLEGIA [None]
  - METHYLENETETRAHYDROFOLATE REDUCTASE DEFICIENCY [None]
  - SOMNOLENCE [None]
